FAERS Safety Report 6204051-6 (Version None)
Quarter: 2009Q2

REPORT INFORMATION
  Report Type: 
  Country: None (occurrence: None)
  Receive Date: 20090521
  Receipt Date: 20090506
  Transmission Date: 20091009
  Serious: Yes (Hospitalization)
  Sender: FDA-Public Use
  Company Number: 8045826

PATIENT
  Age: 35 Year
  Sex: Female
  Weight: 58.1 kg

DRUGS (6)
  1. CIMZIA [Suspect]
     Indication: CROHN'S DISEASE
     Dosage: 400 MG SC
     Route: 058
     Dates: start: 20081107
  2. AEROBID [Concomitant]
  3. ALBUTEROL [Concomitant]
  4. BUDESONIDE [Concomitant]
  5. MORPHINE SULFATE [Concomitant]
  6. FENTANYL /00174602/) [Concomitant]

REACTIONS (4)
  - DEHYDRATION [None]
  - NAUSEA [None]
  - PAIN [None]
  - VOMITING [None]
